FAERS Safety Report 7296499-6 (Version None)
Quarter: 2011Q1

REPORT INFORMATION
  Report Type: 
  Country: None (occurrence: None)
  Receive Date: 20110216
  Receipt Date: 20110202
  Transmission Date: 20110831
  Serious: Yes (Hospitalization, Other)
  Sender: FDA-Public Use
  Company Number: PHHY2011DE06831

PATIENT
  Sex: Female
  Weight: 74 kg

DRUGS (22)
  1. KALINOR [Concomitant]
     Dosage: UNK
     Route: 048
     Dates: start: 20090101
  2. TORSEMIDE [Concomitant]
     Dosage: 10 MG, DAILY
     Route: 048
     Dates: start: 20090101, end: 20101117
  3. AMLODIPINE [Concomitant]
     Dosage: 10 MG, DAILY
     Route: 048
     Dates: start: 20081127
  4. PANTOPRAZOLE [Concomitant]
     Dosage: 40 MG, DAILY
     Route: 048
     Dates: start: 20080101
  5. L-THYROXIN ^HENNING BERLIN^ [Concomitant]
     Dosage: 75 UG, DAILY
     Route: 048
     Dates: start: 20050101
  6. ASS ^CT-ARZNEIMITTEL^ [Concomitant]
     Dosage: 10 MG, DAILY
     Route: 048
     Dates: start: 20080101
  7. NOVORAPID [Concomitant]
     Dosage: 28 IE, UNK
     Route: 058
     Dates: start: 20080101
  8. LEVEMIR [Concomitant]
     Dosage: 50 IE, UNK
     Route: 058
     Dates: start: 20080101
  9. URBASON [Concomitant]
     Dosage: 2 MG, DAILY
     Route: 048
     Dates: start: 20080101
  10. MOLSIDOMIN [Concomitant]
     Dosage: 16 MG, DAILY
     Route: 048
     Dates: start: 20100820
  11. CALCITRIOL [Concomitant]
     Dosage: 0.25 UG, DAILY
     Route: 048
     Dates: start: 20060101
  12. ALISKIREN [Suspect]
     Indication: HYPERTENSION
     Dosage: 150 MG, DAILY
     Route: 048
     Dates: start: 20090304, end: 20100820
  13. HYDROCHLOROTHIAZIDE [Suspect]
     Dosage: 25 MG, DAILY
     Route: 048
     Dates: start: 20090101
  14. ALLOPURINOL [Concomitant]
     Dosage: 100 MG, DAILY
     Route: 048
     Dates: start: 20100820
  15. CELLCEPT [Concomitant]
     Dosage: 500 MG, DAILY
     Route: 048
     Dates: start: 20100101
  16. NEPHROTRANS [Concomitant]
     Dosage: 1500 MG, DAILY
     Route: 048
     Dates: start: 20100101
  17. DIOVAN [Suspect]
     Dosage: 160 MG,DAILY
     Route: 048
     Dates: start: 20090205, end: 20100820
  18. PROGRAF [Concomitant]
     Dosage: 2 MG, DAILY
     Route: 048
  19. FUROSEMIDE [Concomitant]
     Dosage: 120 MG, DAILY
     Route: 048
     Dates: start: 20100101
  20. ANTIDEPRESSANTS [Concomitant]
  21. BISOPROLOL [Concomitant]
     Dosage: 5 MG, DAILY
     Route: 048
     Dates: start: 20090101
  22. NEPRESOL [Concomitant]
     Dosage: UNK
     Route: 048
     Dates: start: 20090311

REACTIONS (5)
  - ANAL HAEMORRHAGE [None]
  - DIVERTICULUM [None]
  - HYPOKALAEMIA [None]
  - VENTRICULAR FAILURE [None]
  - TRANSPLANT REJECTION [None]
